FAERS Safety Report 13837065 (Version 1)
Quarter: 2017Q3

REPORT INFORMATION
  Report Type: Spontaneous
  Country: US (occurrence: US)
  Receive Date: 20170804
  Receipt Date: 20170804
  Transmission Date: 20171127
  Serious: No
  Sender: FDA-Public Use
  Company Number: US-ROCHE-708368

PATIENT
  Age: 90 Year
  Sex: Female
  Weight: 54.5 kg

DRUGS (2)
  1. BONIVA [Suspect]
     Active Substance: IBANDRONATE SODIUM
     Indication: OSTEOPOROSIS
     Route: 048
     Dates: start: 201004, end: 201005
  2. METOPROLOL. [Concomitant]
     Active Substance: METOPROLOL
     Dosage: DRUG REPORTED AS METOPROLOL ISOSORBIDE
     Route: 065

REACTIONS (1)
  - Tooth infection [Recovered/Resolved]
